FAERS Safety Report 8988877 (Version 1)
Quarter: 2012Q4

REPORT INFORMATION
  Report Type: Spontaneous
  Country: US (occurrence: None)
  Receive Date: 20121220
  Receipt Date: 20121220
  Transmission Date: 20130627
  Serious: No
  Sender: FDA-Public Use
  Company Number: PCF.72312.GL.5F

PATIENT

DRUGS (1)
  1. FLUOROURACIL [Suspect]
     Indication: ACTINIC KERATOSIS
     Route: 061
     Dates: start: 20120208, end: 20120321

REACTIONS (3)
  - Dysgeusia [None]
  - Dysgeusia [None]
  - Weight decreased [None]
